FAERS Safety Report 4937177-5 (Version None)
Quarter: 2006Q1

REPORT INFORMATION
  Report Type: 
  Country: None (occurrence: None)
  Receive Date: 20060307
  Receipt Date: 20060307
  Transmission Date: 20060701
  Serious: Yes (Other)
  Sender: FDA-Public Use
  Company Number: None

PATIENT
  Age: 5 Year
  Sex: Male
  Weight: 17.9171 kg

DRUGS (1)
  1. ZYRTEC [Suspect]
     Indication: HYPERSENSITIVITY
     Dosage: 1 TSP 1X/DAY PO
     Route: 048
     Dates: start: 20050610, end: 20060210

REACTIONS (6)
  - ABDOMINAL PAIN UPPER [None]
  - AGGRESSION [None]
  - ANOREXIA [None]
  - ANXIETY [None]
  - EMOTIONAL DISORDER [None]
  - TEARFULNESS [None]
